FAERS Safety Report 7021654-X (Version None)
Quarter: 2010Q3

REPORT INFORMATION
  Report Type: 
  Country: None (occurrence: None)
  Receive Date: 20100930
  Receipt Date: 20100412
  Transmission Date: 20110219
  Serious: Yes (Other)
  Sender: FDA-Public Use
  Company Number: US-ASTRAZENECA-2009UW19224

PATIENT
  Age: 19203 Day
  Sex: Female

DRUGS (7)
  1. SEROQUEL [Suspect]
     Dosage: 50 MG TO 250 MG
     Route: 048
     Dates: start: 20031106
  2. LOMOTIL [Concomitant]
     Dates: start: 20041019
  3. VICOPROFEN [Concomitant]
     Dosage: 7.5 MG-200 MG
     Dates: start: 20041019
  4. XANAX [Concomitant]
     Dates: start: 20041019
  5. ZOCOR [Concomitant]
     Dates: start: 20041019
  6. ADVAIR DISKUS 100/50 [Concomitant]
     Dosage: 250/50 BID
     Dates: start: 20041019
  7. VIOXX [Concomitant]
     Dosage: 25MG/5ML, 25 MG QD
     Dates: start: 20040720

REACTIONS (2)
  - NEUROPATHY PERIPHERAL [None]
  - TYPE 2 DIABETES MELLITUS [None]
